FAERS Safety Report 8722774 (Version 3)
Quarter: 2012Q4

REPORT INFORMATION
  Report Type: 
  Country: US (occurrence: US)
  Receive Date: 20120814
  Receipt Date: 20121217
  Transmission Date: 20130627
  Serious: Yes (Other)
  Sender: FDA-Public Use
  Company Number: US-GLAXOSMITHKLINE-A0988788A

PATIENT
  Age: 3 Year
  Sex: Male
  Weight: 15.9 kg

DRUGS (3)
  1. FLOVENT [Suspect]
     Indication: ASTHMA
     Dosage: 2PUFF Twice per day
     Route: 055
     Dates: start: 20120730
  2. ZYRTEC [Concomitant]
  3. NASONEX [Concomitant]

REACTIONS (5)
  - Aggression [Recovered/Resolved]
  - Self injurious behaviour [Recovered/Resolved]
  - Abnormal behaviour [Recovered/Resolved]
  - Contusion [Recovered/Resolved]
  - Off label use [Recovered/Resolved]
